FAERS Safety Report 21053328 (Version 1)
Quarter: 2022Q3

REPORT INFORMATION
  Report Type: Spontaneous
  Country: US (occurrence: None)
  Receive Date: 20220707
  Receipt Date: 20220707
  Transmission Date: 20221027
  Serious: No
  Sender: FDA-Public Use
  Company Number: None

PATIENT
  Age: 27 Year
  Sex: Female

DRUGS (1)
  1. BEBTELOVIMAB [Suspect]
     Active Substance: BEBTELOVIMAB
     Dosage: FREQUENCY : ONCE;?
     Route: 042

REACTIONS (6)
  - Flushing [None]
  - Dyspnoea [None]
  - Abdominal pain upper [None]
  - Foetal heart rate decreased [None]
  - Maternal drugs affecting foetus [None]
  - Infusion related reaction [None]

NARRATIVE: CASE EVENT DATE: 20220624
